APPROVED DRUG PRODUCT: RECARBRIO
Active Ingredient: CILASTATIN SODIUM; IMIPENEM; RELEBACTAM
Strength: EQ 500MG BASE/VIAL;500MG/VIAL;250MG/VIAL
Dosage Form/Route: POWDER;INTRAVENOUS
Application: N212819 | Product #001
Applicant: MERCK SHARP AND DOHME CORP A SUB OF MERCK AND CO INC
Approved: Jul 16, 2019 | RLD: Yes | RS: Yes | Type: RX

PATENTS:
Patent 8487093 | Expires: Mar 21, 2033
Patent 8487093 | Expires: Mar 21, 2033
Patent 8487093 | Expires: Mar 21, 2033

EXCLUSIVITY:
Code: NCE | Date: Jul 16, 2024
Code: NPP | Date: Dec 9, 2028
Code: GAIN | Date: Jul 16, 2029